FAERS Safety Report 8181625-7 (Version None)
Quarter: 2012Q1

REPORT INFORMATION
  Report Type: 
  Country: None (occurrence: None)
  Receive Date: 20120301
  Receipt Date: 20120301
  Transmission Date: 20120608
  Serious: Yes (Other)
  Sender: FDA-Public Use
  Company Number: None

PATIENT
  Age: 81 Year
  Sex: Female
  Weight: 54.4316 kg

DRUGS (1)
  1. PERIDEX [Suspect]
     Indication: GINGIVITIS
     Dates: start: 20120105, end: 20120110

REACTIONS (1)
  - AGEUSIA [None]
